FAERS Safety Report 5532106-8 (Version None)
Quarter: 2007Q4

REPORT INFORMATION
  Report Type: 
  Country: None (occurrence: None)
  Receive Date: 20071203
  Receipt Date: 20071130
  Transmission Date: 20080405
  Serious: Yes (Hospitalization)
  Sender: FDA-Public Use
  Company Number: D0055343A

PATIENT
  Sex: Male

DRUGS (3)
  1. CEFUHEXAL [Suspect]
     Indication: SINUSITIS
     Dosage: 500MG UNKNOWN
     Route: 048
  2. COTRIMHEXAL FORTE [Suspect]
     Indication: SINUSITIS
     Dosage: 960MG UNKNOWN
     Route: 048
  3. CLINDA-SAAR [Suspect]
     Indication: SINUSITIS
     Route: 048

REACTIONS (3)
  - ANXIETY [None]
  - HYPERTENSION [None]
  - THERAPEUTIC AGENT TOXICITY [None]
